FAERS Safety Report 12127719 (Version 1)
Quarter: 2016Q1

REPORT INFORMATION
  Report Type: Spontaneous
  Country: RS (occurrence: RS)
  Receive Date: 20160229
  Receipt Date: 20160229
  Transmission Date: 20160526
  Serious: Yes (Other)
  Sender: FDA-Public Use
  Company Number: RS-IPCA LABORATORIES LIMITED-IPC201602-000264

PATIENT
  Age: 54 Year
  Sex: Male
  Weight: 78 kg

DRUGS (22)
  1. FUROSEMIDE. [Concomitant]
     Active Substance: FUROSEMIDE
  2. METHYL PREDNISOLONE [Concomitant]
     Active Substance: METHYLPREDNISOLONE
  3. HYDROXYETHYL STARCH [Suspect]
     Active Substance: HETASTARCH
  4. FOSINOPRIL [Concomitant]
     Active Substance: FOSINOPRIL
  5. PROPOFOL. [Concomitant]
     Active Substance: PROPOFOL
  6. SEVOFLURANE. [Concomitant]
     Active Substance: SEVOFLURANE
  7. NOREPINEPHRINE [Concomitant]
     Active Substance: NOREPINEPHRINE\NOREPINEPHRINE BITARTRATE
  8. HEPATECT [Suspect]
     Active Substance: HUMAN HEPATITIS B VIRUS IMMUNE GLOBULIN
  9. TRANEXAMIC ACID. [Concomitant]
     Active Substance: TRANEXAMIC ACID
  10. CISATRACURIUM. [Concomitant]
     Active Substance: CISATRACURIUM
  11. ALLOPURINOL. [Suspect]
     Active Substance: ALLOPURINOL
  12. ADENOSINE. [Suspect]
     Active Substance: ADENOSINE
  13. SUCCINYLCHOLINE [Concomitant]
     Active Substance: SUCCINYLCHOLINE
  14. FENTANYL. [Concomitant]
     Active Substance: FENTANYL
  15. ALDACTONE [Concomitant]
     Active Substance: SPIRONOLACTONE
  16. CALCIUM GLUCONATE. [Concomitant]
     Active Substance: CALCIUM GLUCONATE
  17. NOREPINEPHRINE [Concomitant]
     Active Substance: NOREPINEPHRINE\NOREPINEPHRINE BITARTRATE
  18. MIDAZOLAM [Concomitant]
     Active Substance: MIDAZOLAM\MIDAZOLAM HYDROCHLORIDE
  19. PENICILLIN [Suspect]
     Active Substance: PENICILLIN
  20. PROPRANOLOL [Concomitant]
     Active Substance: PROPRANOLOL\PROPRANOLOL HYDROCHLORIDE
  21. METHYL PREDNISOLONE [Concomitant]
     Active Substance: METHYLPREDNISOLONE
  22. NOREPINEPHRINE [Concomitant]
     Active Substance: NOREPINEPHRINE\NOREPINEPHRINE BITARTRATE
     Route: 042

REACTIONS (2)
  - Anaphylactic reaction [Recovering/Resolving]
  - Cardiac arrest [Recovering/Resolving]
